FAERS Safety Report 14015940 (Version 2)
Quarter: 2017Q4

REPORT INFORMATION
  Report Type: Report from Study
  Country: NL (occurrence: NL)
  Receive Date: 20170927
  Receipt Date: 20171031
  Transmission Date: 20180321
  Serious: Yes (Other)
  Sender: FDA-Public Use
  Company Number: NL-BEH-2017083757

PATIENT
  Age: 42 Year
  Sex: Male

DRUGS (2)
  1. HUMAN IMMUNOGLOBULIN (NON-COMPANY) [Suspect]
     Active Substance: HUMAN IMMUNOGLOBULIN G
     Dosage: 150 G, SINGLE
     Route: 042
  2. HUMAN IMMUNOGLOBULIN (NON-COMPANY) [Suspect]
     Active Substance: HUMAN IMMUNOGLOBULIN G
     Indication: CHRONIC INFLAMMATORY DEMYELINATING POLYRADICULONEUROPATHY
     Dosage: 75 G, Q3W
     Route: 042

REACTIONS (6)
  - Skin plaque [Recovering/Resolving]
  - Cutaneous lupus erythematosus [Recovering/Resolving]
  - Pruritus [Recovering/Resolving]
  - Erythema annulare [Recovering/Resolving]
  - Macule [Recovering/Resolving]
  - Excoriation [Recovering/Resolving]
